FAERS Safety Report 10177018 (Version 1)
Quarter: 2014Q2

REPORT INFORMATION
  Report Type: Spontaneous
  Country: US (occurrence: None)
  Receive Date: 20140515
  Receipt Date: 20140515
  Transmission Date: 20141212
  Serious: No
  Sender: FDA-Public Use
  Company Number: None

PATIENT
  Age: 40 Year
  Sex: Female
  Weight: 75.9 kg

DRUGS (1)
  1. PACLITAXEL (TAXOL) [Suspect]
     Dates: end: 20110512

REACTIONS (5)
  - Pain in extremity [None]
  - Burning sensation [None]
  - Gait disturbance [None]
  - Burning sensation [None]
  - Balance disorder [None]
